FAERS Safety Report 5125384-0 (Version None)
Quarter: 2006Q4

REPORT INFORMATION
  Report Type: 
  Country: None (occurrence: None)
  Receive Date: 20061011
  Receipt Date: 20060927
  Transmission Date: 20070319
  Serious: Yes (Other)
  Sender: FDA-Public Use
  Company Number: PHBS2006JP15230

PATIENT
  Age: 58 Year
  Sex: Male

DRUGS (1)
  1. GLEEVEC [Suspect]
     Indication: CHRONIC EOSINOPHILIC LEUKAEMIA
     Dosage: 100 MG/DAY
     Route: 048

REACTIONS (7)
  - BASILAR ARTERY STENOSIS [None]
  - DIARRHOEA [None]
  - EOSINOPHILIA [None]
  - INFARCTION [None]
  - PYREXIA [None]
  - RENAL DISORDER [None]
  - VOMITING [None]
